FAERS Safety Report 8534621-1 (Version None)
Quarter: 2012Q3

REPORT INFORMATION
  Report Type: 
  Country: None (occurrence: None)
  Receive Date: 20120724
  Receipt Date: 20120711
  Transmission Date: 20120928
  Serious: No
  Sender: FDA-Public Use
  Company Number: US-ASTRAZENECA-2012SE33536

PATIENT
  Age: 41 Year
  Sex: Male

DRUGS (4)
  1. PULMICORT FLEXHALER [Suspect]
     Indication: UPPER RESPIRATORY TRACT INFLAMMATION
     Dosage: 180 MCG, TWO PUFFS, TWO TIMES A DAY
     Route: 055
     Dates: start: 20120101
  2. PULMICORT FLEXHALER [Suspect]
     Dosage: 180 MCG
     Route: 055
  3. PULMICORT FLEXHALER [Suspect]
     Dosage: 180 MCG
     Route: 055
  4. PULMICORT FLEXHALER [Suspect]
     Indication: BRONCHITIS
     Dosage: 180 MCG, TWO PUFFS, TWO TIMES A DAY
     Route: 055
     Dates: start: 20120101

REACTIONS (4)
  - DYSPNOEA [None]
  - CONDITION AGGRAVATED [None]
  - OFF LABEL USE [None]
  - DRUG INEFFECTIVE FOR UNAPPROVED INDICATION [None]
